FAERS Safety Report 7114192-7 (Version None)
Quarter: 2010Q4

REPORT INFORMATION
  Report Type: 
  Country: None (occurrence: None)
  Receive Date: 20101119
  Receipt Date: 20101109
  Transmission Date: 20110411
  Serious: Yes (Hospitalization)
  Sender: FDA-Public Use
  Company Number: DK-SANOFI-AVENTIS-2010SA068268

PATIENT
  Age: 68 Year
  Sex: Male

DRUGS (2)
  1. MULTAQ [Suspect]
     Indication: ATRIAL FIBRILLATION
     Dosage: 400 MILLIGRAM(S)
     Route: 048
     Dates: start: 20101005, end: 20101103
  2. RAMIPRIL [Concomitant]
     Indication: HYPERTENSION

REACTIONS (3)
  - ERYTHEMA [None]
  - FEELING HOT [None]
  - HEADACHE [None]
